FAERS Safety Report 4619860-4 (Version None)
Quarter: 2005Q1

REPORT INFORMATION
  Report Type: 
  Country: None (occurrence: None)
  Receive Date: 20050328
  Receipt Date: 20050316
  Transmission Date: 20050727
  Serious: Yes (Hospitalization, Other)
  Sender: FDA-Public Use
  Company Number: US-JNJFOC-20050205017

PATIENT
  Sex: Male
  Weight: 49.9 kg

DRUGS (2)
  1. REMICADE [Suspect]
     Indication: ENTEROVESICAL FISTULA
     Route: 042
  2. REMICADE [Suspect]
     Indication: CROHN'S DISEASE
     Route: 042

REACTIONS (1)
  - DRUG INEFFECTIVE [None]
